FAERS Safety Report 9230632 (Version 1)
Quarter: 2013Q1

REPORT INFORMATION
  Report Type: Spontaneous
  Country: US (occurrence: None)
  Receive Date: 20121031
  Receipt Date: 20121031
  Transmission Date: 20140127
  Serious: No
  Sender: FDA-Public Use
  Company Number: PHEH2012US015698

PATIENT
  Age: 37 Year
  Sex: Female

DRUGS (19)
  1. GILENYA (FTY) CAPSULE, 0.5MG [Suspect]
     Indication: MULTIPLE SCLEROSIS
     Route: 048
     Dates: start: 20120305
  2. CYMBALTA (DULOXETINE HYDROCHLORIDE) [Concomitant]
  3. CENTRUM SILVER (ASCORBIC ACID, CALCIUM, MINERALS NOS, RETINOL, TOCOPHERYL ACETATE, VITAMIN B NOS, VITAMINS NOS, ZINC) TABLET [Concomitant]
  4. SINGULAIR [Concomitant]
  5. LASIX (FUROSEMIDE) [Concomitant]
  6. DILANTIN (PHENYTOIN SODIUM) [Concomitant]
  7. NEURONTIN (GABAPENTIN) [Concomitant]
  8. RITALIN (METHYLPHENIDATE HYDROCHLORIDE) [Concomitant]
  9. BUSPIRONE HYDROCHLORIDE (BUSPIRONE HYDROCHLORIDE) [Concomitant]
  10. PROMETHAZINE (PROMETHAZINE) [Concomitant]
  11. VALIUM (DIAZEPAM) [Concomitant]
  12. WELLBUTRIN SR (BUPROPION) [Concomitant]
  13. ZOFRAN (ONDANSETRON HYDROCHLORIDE) [Concomitant]
  14. VALTREX (VALACICLOVIR HYDROCHLORIDE) [Concomitant]
  15. HYDROXYZINE HYDROCHLORIDE (HYDROXYZINE HYDROCHLORIDE) [Concomitant]
  16. VITAMIN D (ERGOCALCIFEROL) [Concomitant]
  17. B COMPLEX (NICOTINAMIDE, PYRIDOXINE HYDROCHLORIDE, RIBOFLAVIN, THIAMINE HYDROCHLORIDE) [Concomitant]
  18. LUNESTA (ESZOPICLONE) [Concomitant]
  19. RISPERDAL (RISPERIDONE) [Concomitant]

REACTIONS (2)
  - Nausea [None]
  - Vomiting [None]
